FAERS Safety Report 7418175-9 (Version None)
Quarter: 2011Q2

REPORT INFORMATION
  Report Type: 
  Country: None (occurrence: None)
  Receive Date: 20110415
  Receipt Date: 20110413
  Transmission Date: 20111010
  Serious: Yes (Other)
  Sender: FDA-Public Use
  Company Number: A0922909A

PATIENT
  Sex: Female

DRUGS (1)
  1. NICODERM CQ [Suspect]
     Route: 062

REACTIONS (2)
  - HALLUCINATION [None]
  - RASH [None]
